FAERS Safety Report 11605063 (Version 3)
Quarter: 2015Q4

REPORT INFORMATION
  Report Type: Spontaneous
  Country: US (occurrence: US)
  Receive Date: 20151007
  Receipt Date: 20151126
  Transmission Date: 20160304
  Serious: Yes (Other)
  Sender: FDA-Public Use
  Company Number: US-PFIZER INC-2015320433

PATIENT
  Age: 59 Year
  Sex: Female
  Weight: 65 kg

DRUGS (8)
  1. IBRANCE [Suspect]
     Active Substance: PALBOCICLIB
     Indication: BREAST CANCER METASTATIC
     Dosage: 100 MG DAILY X 21 DAYS, REST 7-14 DAYS (BASED ON LAB VALUE AND REPEAT)
     Route: 048
     Dates: start: 201504
  2. LETROZOLE. [Concomitant]
     Active Substance: LETROZOLE
  3. METOPROLOL [Concomitant]
     Active Substance: METOPROLOL
     Indication: HYPERTENSION
     Dosage: 25 MG, 1X/DAY
  4. AROMASIN [Concomitant]
     Active Substance: EXEMESTANE
     Dosage: 25 MG, 1X/DAY
     Dates: start: 201505
  5. PANTOPRAZOLE [Concomitant]
     Active Substance: PANTOPRAZOLE SODIUM
     Dosage: 40 MG, 1X/DAY
     Dates: start: 2014
  6. TAMOXIFEN [Concomitant]
     Active Substance: TAMOXIFEN
  7. PANTOPRAZOLE [Concomitant]
     Active Substance: PANTOPRAZOLE SODIUM
     Indication: DYSPEPSIA
     Dosage: 40 MG, 2X/DAY
     Dates: end: 2014
  8. XARELTO [Concomitant]
     Active Substance: RIVAROXABAN
     Indication: EMBOLISM
     Dosage: 20 MG, DAILY
     Dates: start: 201410

REACTIONS (1)
  - Neutropenia [Unknown]
